FAERS Safety Report 17919210 (Version 2)
Quarter: 2020Q3

REPORT INFORMATION
  Report Type: Spontaneous
  Country: US (occurrence: US)
  Receive Date: 20200619
  Receipt Date: 20200703
  Transmission Date: 20201103
  Serious: Yes (Life-Threatening, Hospitalization, Other)
  Sender: FDA-Public Use
  Company Number: NVSC2020US170635

PATIENT
  Age: 27 Year
  Sex: Male
  Weight: 80 kg

DRUGS (3)
  1. PREDNISONE. [Suspect]
     Active Substance: PREDNISONE
     Indication: PRODUCT USED FOR UNKNOWN INDICATION
     Dosage: 10 MG (30 TABLETS)
     Route: 065
  2. METHOTREXATE. [Suspect]
     Active Substance: METHOTREXATE
     Indication: PRODUCT USED FOR UNKNOWN INDICATION
     Dosage: 2.5 MG (30 TABLETS)
     Route: 065
  3. HYDROXYCHLOROQUINE SULFATE TABLETS USP [Suspect]
     Active Substance: HYDROXYCHLOROQUINE SULFATE
     Indication: PRODUCT USED FOR UNKNOWN INDICATION
     Dosage: 200 MG (20 TABLETS)
     Route: 065

REACTIONS (9)
  - Overdose [Unknown]
  - Poisoning [Unknown]
  - Suicide attempt [Unknown]
  - Hypokalaemia [Unknown]
  - Nausea [Unknown]
  - Somnolence [Unknown]
  - Vomiting [Unknown]
  - Muscular weakness [Unknown]
  - Ventricular tachycardia [Unknown]
